FAERS Safety Report 7115243-6 (Version None)
Quarter: 2010Q4

REPORT INFORMATION
  Report Type: 
  Country: None (occurrence: None)
  Receive Date: 20101122
  Receipt Date: 20100304
  Transmission Date: 20110411
  Serious: No
  Sender: FDA-Public Use
  Company Number: A0848349A

PATIENT
  Age: 12 Year
  Sex: Female

DRUGS (2)
  1. EVOCLIN [Suspect]
     Indication: ACNE
     Dosage: 1APP PER DAY
     Route: 061
     Dates: start: 20100301
  2. UNKNOWN [Concomitant]

REACTIONS (3)
  - ABDOMINAL PAIN UPPER [None]
  - ACNE [None]
  - CONDITION AGGRAVATED [None]
